FAERS Safety Report 10573924 (Version 3)
Quarter: 2015Q1

REPORT INFORMATION
  Report Type: Report from Study
  Country: TW (occurrence: TW)
  Receive Date: 20141110
  Receipt Date: 20150219
  Transmission Date: 20150720
  Serious: Yes (Death, Other)
  Sender: FDA-Public Use
  Company Number: PHHO2014TW014453

PATIENT
  Age: 41 Year
  Sex: Female
  Weight: 42.1 kg

DRUGS (40)
  1. PRIMPERAN [Concomitant]
     Active Substance: METOCLOPRAMIDE HYDROCHLORIDE
     Dosage: 10 MG/2ML (10 MG, 1 IN 6 HR)
     Route: 042
     Dates: start: 20141013, end: 20141020
  2. TRANSAMIN [Concomitant]
     Active Substance: TRANEXAMIC ACID
     Indication: HAEMATURIA
     Dosage: 250MG/5ML (250 MG,1 IN 8 HR)
     Route: 042
     Dates: start: 20141001, end: 20141019
  3. FUROSEMIDE. [Concomitant]
     Active Substance: FUROSEMIDE
     Dosage: 40 MG, QD
     Route: 048
     Dates: start: 20141016, end: 20141019
  4. NYSTATIN. [Concomitant]
     Active Substance: NYSTATIN
     Indication: PROPHYLAXIS
     Dosage: 1500000 IU, AFTER MEALS
     Route: 048
     Dates: start: 20140920, end: 20141020
  5. GASCON [Concomitant]
     Active Substance: DIMETHICONE
     Indication: PRODUCT USED FOR UNKNOWN INDICATION
     Dosage: 40 MG, UNK
     Route: 048
     Dates: start: 20141006, end: 20141020
  6. UROKINASE [Concomitant]
     Active Substance: UROKINASE
     Indication: PRODUCT USED FOR UNKNOWN INDICATION
     Dosage: 50000 IU, UNK
     Route: 042
     Dates: start: 20141018, end: 20141019
  7. DESONIDE DISODIUM PHOSPHATE [Concomitant]
     Indication: CONSTIPATION
     Dosage: 118 ML, UNK
     Route: 054
     Dates: start: 20141012, end: 20141012
  8. ACETAMINOPHEN. [Concomitant]
     Active Substance: ACETAMINOPHEN
     Indication: BREAKTHROUGH PAIN
     Dosage: 1 DF, PRN
     Route: 048
     Dates: start: 20140930, end: 20141020
  9. SATIVEX [Suspect]
     Active Substance: NABIXIMOLS
     Indication: CANCER PAIN
     Dosage: 4 ACTUATIONS (1 ACTUATIONS,4 IN 1 D)
     Route: 002
     Dates: start: 20141015, end: 20141019
  10. NEXIUM [Concomitant]
     Active Substance: ESOMEPRAZOLE MAGNESIUM
     Indication: PRODUCT USED FOR UNKNOWN INDICATION
     Dosage: 40 MG, QD
     Route: 048
     Dates: start: 20140923, end: 20141020
  11. QUETIAPINE [Concomitant]
     Active Substance: QUETIAPINE
     Indication: INSOMNIA
     Dosage: 200 MG, QD
     Route: 048
     Dates: start: 20140906, end: 20141019
  12. FUROSEMIDE. [Concomitant]
     Active Substance: FUROSEMIDE
     Indication: ASCITES
     Dosage: 40 MG, BID
     Route: 048
     Dates: start: 20141004, end: 20141012
  13. LACTULOSE. [Concomitant]
     Active Substance: LACTULOSE
     Indication: PRODUCT USED FOR UNKNOWN INDICATION
     Dosage: 667 MG, QID
     Route: 048
     Dates: start: 20141011, end: 20141020
  14. BARACLUDE [Concomitant]
     Active Substance: ENTECAVIR
     Indication: HEPATITIS B
     Dosage: 0.5 MG, QD
     Route: 048
     Dates: start: 20140214, end: 20141020
  15. PRIMPERAN [Concomitant]
     Active Substance: METOCLOPRAMIDE HYDROCHLORIDE
     Indication: GASTROOESOPHAGEAL REFLUX DISEASE
     Dosage: 10 MG/2ML (10 MG, 1 IN 6 HR)
     Route: 042
     Dates: start: 20140923, end: 20141010
  16. MODIPANOL [Concomitant]
     Indication: INSOMNIA
     Dosage: 2 MG, PRN
     Route: 048
     Dates: start: 20140906, end: 20141019
  17. EVAC [Concomitant]
     Indication: PRODUCT USED FOR UNKNOWN INDICATION
     Dosage: 118 ML, UNK
     Route: 054
     Dates: start: 20141012, end: 20141013
  18. TEGAFUR [Concomitant]
     Active Substance: TEGAFUR
     Indication: CHEMOTHERAPY
     Dosage: 20 MG, BID
     Route: 048
     Dates: start: 20140923, end: 20141020
  19. ACETAMINOPHEN. [Concomitant]
     Active Substance: ACETAMINOPHEN
     Dosage: 1 DF, QID
     Route: 048
     Dates: start: 20141005, end: 20141006
  20. BLINDED NO TREATMENT RECEIVED [Suspect]
     Active Substance: UNSPECIFIED INGREDIENT
     Dosage: NO TREATMENT
  21. PLACEBO [Suspect]
     Active Substance: UNSPECIFIED INGREDIENT
     Dosage: NO TREATMENT
  22. BARACLUDE [Concomitant]
     Active Substance: ENTECAVIR
     Dosage: 0.5 MG, QD
     Route: 048
     Dates: start: 20140922
  23. SPIROTONE [Concomitant]
     Indication: HYPOKALAEMIA
     Dosage: 25 MG, QD
     Route: 048
     Dates: start: 20140921, end: 20141018
  24. BLINDED SATIVEX [Suspect]
     Active Substance: NABIXIMOLS
     Dosage: NO TREATMENT
  25. SPIROTONE [Concomitant]
     Dosage: 25 MG, QD
     Route: 048
     Dates: start: 20140922
  26. TRAMADOL [Concomitant]
     Active Substance: TRAMADOL
     Indication: BREAKTHROUGH PAIN
     Dosage: 100 MG, PRN
     Route: 048
     Dates: start: 20141005, end: 20141006
  27. PLASBUMIN [Concomitant]
     Active Substance: ALBUMIN (HUMAN)
     Indication: ASCITES
     Dosage: 50 ML, UNK
     Route: 065
     Dates: start: 20141010, end: 20141011
  28. SALINE [Concomitant]
     Active Substance: SODIUM CHLORIDE
     Indication: PRODUCT USED FOR UNKNOWN INDICATION
     Dosage: 500 ML, QD
     Route: 065
     Dates: start: 20140927, end: 20141010
  29. SALINE [Concomitant]
     Active Substance: SODIUM CHLORIDE
     Dosage: 1000 ML, QD
     Route: 030
     Dates: start: 20140930, end: 20141014
  30. MIDAZOLAM [Concomitant]
     Active Substance: MIDAZOLAM\MIDAZOLAM HYDROCHLORIDE
     Indication: INSOMNIA
     Dosage: 15 MG, QD
     Route: 048
     Dates: start: 20140906, end: 20141019
  31. MIDAZOLAM [Concomitant]
     Active Substance: MIDAZOLAM\MIDAZOLAM HYDROCHLORIDE
     Dosage: 5 MG/ML, 2.5 MG
     Route: 065
     Dates: start: 20141019, end: 20141019
  32. ULTRACET [Concomitant]
     Active Substance: ACETAMINOPHEN\TRAMADOL HYDROCHLORIDE
     Indication: PRODUCT USED FOR UNKNOWN INDICATION
     Dosage: 40 MG, PRN
     Route: 048
     Dates: start: 20141005, end: 20141020
  33. CHLORPHENAMINE [Concomitant]
     Active Substance: CHLORPHENIRAMINE MALEATE
     Indication: PROPHYLAXIS
     Dosage: 5MG/1ML (5 MG)
     Route: 042
     Dates: start: 20141009, end: 20141011
  34. SIMETHICONE [Concomitant]
     Active Substance: DIMETHICONE\SILICON DIOXIDE\SIMETHICONE
     Indication: ABDOMINAL DISTENSION
     Dosage: 40 MG, QID
     Dates: start: 20140921, end: 20141020
  35. XANAX [Concomitant]
     Active Substance: ALPRAZOLAM
     Indication: IRRITABILITY
     Dosage: 0.5 MG, TID
     Route: 048
     Dates: start: 20140926, end: 20141019
  36. PLASBUMIN [Concomitant]
     Active Substance: ALBUMIN (HUMAN)
     Dosage: 50 ML, BID
     Route: 065
     Dates: start: 20141012, end: 20141014
  37. LACTULOSE. [Concomitant]
     Active Substance: LACTULOSE
     Dosage: 667 MG, QID
     Route: 048
  38. TRAMADOL [Concomitant]
     Active Substance: TRAMADOL
     Indication: CANCER PAIN
     Dosage: 100 MG, QID
     Route: 048
     Dates: start: 20140930, end: 20141019
  39. TRAMADOL [Concomitant]
     Active Substance: TRAMADOL
     Dosage: 100 MG, U1 IN 12 HR
     Route: 048
     Dates: start: 20141019, end: 20141020
  40. CHLORPHENAMINE [Concomitant]
     Active Substance: CHLORPHENIRAMINE MALEATE
     Dosage: 5MG/1ML (5 MG)
     Route: 042
     Dates: start: 20141014, end: 20141014

REACTIONS (2)
  - Neoplasm progression [Fatal]
  - Seizure [Recovered/Resolved]

NARRATIVE: CASE EVENT DATE: 20141019
